FAERS Safety Report 23968937 (Version 1)
Quarter: 2024Q2

REPORT INFORMATION
  Report Type: Report from Study
  Country: US (occurrence: US)
  Receive Date: 20240612
  Receipt Date: 20240612
  Transmission Date: 20240716
  Serious: Yes (Congenital Anomaly, Other)
  Sender: FDA-Public Use
  Company Number: US-TEVA-VS-3208357

PATIENT
  Sex: Male
  Weight: 3.294 kg

DRUGS (6)
  1. QUETIAPINE [Suspect]
     Active Substance: QUETIAPINE
     Indication: Anxiety
     Route: 064
     Dates: start: 20210111
  2. METFORMIN [Concomitant]
     Active Substance: METFORMIN HYDROCHLORIDE
     Dates: start: 20210111
  3. LEVOTHYROXINE [Concomitant]
     Active Substance: LEVOTHYROXINE\LEVOTHYROXINE SODIUM
     Dates: start: 20210111
  4. PROGESTERONE [Concomitant]
     Active Substance: PROGESTERONE
     Dates: start: 20210208, end: 20210329
  5. AMPICILLIN [Concomitant]
     Active Substance: AMPICILLIN
     Dates: start: 20210315, end: 20210322
  6. SERTRALINE [Concomitant]
     Active Substance: SERTRALINE HYDROCHLORIDE
     Dates: start: 20210816, end: 20210927

REACTIONS (11)
  - Hypospadias [Unknown]
  - Chordee [Unknown]
  - Acquired plagiocephaly [Recovering/Resolving]
  - Hydrocele [Unknown]
  - Hooded prepuce [Unknown]
  - Telangiectasia [Unknown]
  - Contusion [Unknown]
  - Cephalhaematoma [Unknown]
  - Foetal exposure during pregnancy [Unknown]
  - Livedo reticularis [Unknown]
  - Jaundice [Unknown]

NARRATIVE: CASE EVENT DATE: 20211007
